FAERS Safety Report 18566722 (Version 2)
Quarter: 2020Q4

REPORT INFORMATION
  Report Type: Spontaneous
  Country: JP (occurrence: JP)
  Receive Date: 20201201
  Receipt Date: 20201230
  Transmission Date: 20210114
  Serious: Yes (Death)
  Sender: FDA-Public Use
  Company Number: JP-ASTRAZENECA-2020SF57078

PATIENT
  Age: 88 Year
  Sex: Male

DRUGS (9)
  1. MYSLEE [Concomitant]
     Active Substance: ZOLPIDEM TARTRATE
     Dosage: FOR 8 DAYS
     Route: 048
  2. MUCODYNE [Concomitant]
     Active Substance: CARBOCYSTEINE
     Route: 048
  3. BREZTRI [Suspect]
     Active Substance: BUDESONIDE\FORMOTEROL\GLYCOPYRRONIUM
     Indication: CHRONIC OBSTRUCTIVE PULMONARY DISEASE
     Dosage: UNKNOWN
     Route: 055
     Dates: start: 20201106
  4. PROTECADIN [Concomitant]
     Active Substance: LAFUTIDINE
     Dosage: FOR 8 DAYS10.0MG UNKNOWN
     Route: 048
  5. BILANOA [Concomitant]
     Active Substance: BILASTINE
     Dosage: FOR 8 DAYS
     Route: 048
  6. PREMINENT [Concomitant]
     Active Substance: HYDROCHLOROTHIAZIDE\LOSARTAN POTASSIUM
     Dosage: LD, FOR 8 DAYS
     Route: 048
  7. CLARITH [Concomitant]
     Active Substance: CLARITHROMYCIN
     Dosage: FOR 14 DAYS
     Route: 048
  8. KIPRES [Concomitant]
     Active Substance: MONTELUKAST SODIUM
     Route: 048
  9. FEBURIC [Concomitant]
     Active Substance: FEBUXOSTAT
     Dosage: FOR 8 DAYS20.0MG UNKNOWN
     Route: 048

REACTIONS (2)
  - Chronic obstructive pulmonary disease [Fatal]
  - Respiratory failure [Fatal]
